FAERS Safety Report 5196333-4 (Version None)
Quarter: 2007Q1

REPORT INFORMATION
  Report Type: 
  Country: None (occurrence: None)
  Receive Date: 20070102
  Receipt Date: 20061221
  Transmission Date: 20070707
  Serious: Yes (Other)
  Sender: FDA-Public Use
  Company Number: BE-PFIZER INC-2006156121

PATIENT
  Age: 37 Year
  Sex: Female

DRUGS (9)
  1. NEURONTIN [Suspect]
     Indication: NEURALGIA
     Route: 048
  2. PAROXETINE HCL [Concomitant]
     Indication: OBSESSIVE-COMPULSIVE DISORDER
  3. REDOMEX [Concomitant]
  4. MYOLASTAN [Concomitant]
  5. DURAGESIC-100 [Concomitant]
     Route: 062
  6. CONTRAMAL [Concomitant]
  7. INDOMETHACIN [Concomitant]
  8. ACETAMINOPHEN [Concomitant]
  9. PROMETHAZINE [Concomitant]

REACTIONS (2)
  - EXTREMITY CONTRACTURE [None]
  - TRISMUS [None]
